FAERS Safety Report 5014382-3 (Version None)
Quarter: 2006Q2

REPORT INFORMATION
  Report Type: 
  Country: None (occurrence: None)
  Receive Date: 20060525
  Receipt Date: 20060516
  Transmission Date: 20061013
  Serious: Yes (Hospitalization)
  Sender: FDA-Public Use
  Company Number: 2006-DE-02515GD

PATIENT
  Age: 16 Year
  Sex: Male

DRUGS (2)
  1. IBUPROFEN [Suspect]
     Indication: HEADACHE
     Dosage: 1200 MG
  2. NAPROXEN [Suspect]
     Indication: HEADACHE
     Dosage: 500 MG

REACTIONS (1)
  - RENAL FAILURE ACUTE [None]
